FAERS Safety Report 8695754 (Version 3)
Quarter: 2012Q4

REPORT INFORMATION
  Report Type: 
  Country: US (occurrence: US)
  Receive Date: 20120731
  Receipt Date: 20121220
  Transmission Date: 20130627
  Serious: No
  Sender: FDA-Public Use
  Company Number: US-ASTRAZENECA-2011SE71149

PATIENT
  Age: 61 Year
  Sex: Female
  Weight: 56.7 kg

DRUGS (3)
  1. SEROQUEL [Suspect]
     Route: 048
  2. SEROQUEL [Suspect]
     Route: 048
     Dates: start: 2007
  3. FOSAMAX [Concomitant]

REACTIONS (9)
  - Bipolar disorder [Unknown]
  - Anxiety [Unknown]
  - Panic disorder [Unknown]
  - Panic attack [Unknown]
  - Insomnia [Unknown]
  - Anxiety [Unknown]
  - Nervousness [Unknown]
  - Emotional distress [Unknown]
  - Drug dispensing error [Unknown]
